FAERS Safety Report 11549707 (Version 1)
Quarter: 2015Q3

REPORT INFORMATION
  Report Type: Spontaneous
  Country: US (occurrence: US)
  Receive Date: 20150924
  Receipt Date: 20150924
  Transmission Date: 20151125
  Serious: No
  Sender: FDA-Public Use
  Company Number: US-INCYTE CORPORATION-2015IN001377

PATIENT
  Sex: Female
  Weight: 54 kg

DRUGS (12)
  1. JAKAFI [Suspect]
     Active Substance: RUXOLITINIB
     Indication: GRAFT VERSUS HOST DISEASE
     Dosage: 5 MG, BID
     Route: 048
     Dates: start: 20141004, end: 20150112
  2. CIPRO                              /00697201/ [Concomitant]
     Active Substance: CIPROFLOXACIN
  3. ACYCLOVIR                          /00587301/ [Concomitant]
     Active Substance: ACYCLOVIR
  4. FLUOXETINE [Concomitant]
     Active Substance: FLUOXETINE\FLUOXETINE HYDROCHLORIDE
  5. FLOVENT [Concomitant]
     Active Substance: FLUTICASONE PROPIONATE
  6. RANITIDINE [Concomitant]
     Active Substance: RANITIDINE\RANITIDINE HYDROCHLORIDE
  7. BUDESONIDE. [Concomitant]
     Active Substance: BUDESONIDE
  8. POSACONAZOLE [Concomitant]
     Active Substance: POSACONAZOLE
  9. SEPTRA [Concomitant]
     Active Substance: SULFAMETHOXAZOLE\TRIMETHOPRIM
  10. VALGANCICLOVIR [Concomitant]
     Active Substance: VALGANCICLOVIR
  11. PREDNISONE. [Concomitant]
     Active Substance: PREDNISONE
  12. TACROLIMUS. [Concomitant]
     Active Substance: TACROLIMUS

REACTIONS (1)
  - Off label use [Unknown]
